FAERS Safety Report 4789808-0 (Version None)
Quarter: 2005Q4

REPORT INFORMATION
  Report Type: 
  Country: None (occurrence: None)
  Receive Date: 20051006
  Receipt Date: 20050929
  Transmission Date: 20060501
  Serious: Yes (Other)
  Sender: FDA-Public Use
  Company Number: GB-GLAXOSMITHKLINE-B0395658A

PATIENT
  Age: 58 Year
  Sex: Female
  Weight: 60 kg

DRUGS (2)
  1. BECOTIDE [Suspect]
     Indication: ASTHMA
     Dosage: 100MCG PER DAY
     Route: 055
     Dates: start: 19750101, end: 20010101
  2. VENTOLIN [Concomitant]
     Indication: ASTHMA
     Dosage: 100MCG PER DAY
     Route: 055

REACTIONS (2)
  - GINGIVAL DISORDER [None]
  - ORAL MUCOSAL BLISTERING [None]
